FAERS Safety Report 6198441-8 (Version None)
Quarter: 2009Q2

REPORT INFORMATION
  Report Type: 
  Country: None (occurrence: None)
  Receive Date: 20090521
  Receipt Date: 20090519
  Transmission Date: 20091009
  Serious: No
  Sender: FDA-Public Use
  Company Number: US-B.I. PHARMACEUTICALS,INC./RIDGEFIELD-2009-BP-05500BP

PATIENT
  Sex: Female

DRUGS (5)
  1. SPIRIVA [Suspect]
     Indication: CHRONIC OBSTRUCTIVE PULMONARY DISEASE
     Dosage: 18MCG
     Route: 055
     Dates: start: 20070101
  2. LUMIGAN [Concomitant]
     Indication: GLAUCOMA
     Dates: start: 20040101
  3. XIBROM [Concomitant]
     Indication: CATARACT
     Dates: start: 20050101
  4. DYAZIDE [Concomitant]
     Indication: HYPERTENSION
  5. OMEPRAZOLE [Concomitant]
     Indication: GASTROOESOPHAGEAL REFLUX DISEASE

REACTIONS (5)
  - CATARACT [None]
  - DIZZINESS [None]
  - HEADACHE [None]
  - HEART VALVE INCOMPETENCE [None]
  - MACULAR DEGENERATION [None]
